FAERS Safety Report 25338646 (Version 1)
Quarter: 2025Q2

REPORT INFORMATION
  Report Type: Spontaneous
  Country: US (occurrence: US)
  Receive Date: 20250520
  Receipt Date: 20250520
  Transmission Date: 20250716
  Serious: No
  Sender: SANOFI AVENTIS
  Company Number: US-SANOFI-02526932

PATIENT
  Age: 36 Year
  Sex: Female

DRUGS (2)
  1. CEREZYME [Suspect]
     Active Substance: IMIGLUCERASE
     Indication: Gaucher^s disease
     Dosage: 3600 MG, QOW
     Route: 065
  2. CEREZYME [Suspect]
     Active Substance: IMIGLUCERASE
     Dosage: 3600 MG, Q4W
     Route: 065

REACTIONS (1)
  - Off label use [Unknown]
